FAERS Safety Report 6727270-9 (Version None)
Quarter: 2010Q2

REPORT INFORMATION
  Report Type: 
  Country: None (occurrence: None)
  Receive Date: 20100512
  Receipt Date: 20100329
  Transmission Date: 20101027
  Serious: No
  Sender: FDA-Public Use
  Company Number: 1000012923

PATIENT
  Age: 43 Year
  Sex: Female

DRUGS (7)
  1. SAVELLA [Suspect]
     Dosage: 12.5 MG (12.5 MG, 1 IN 1 D), ORAL 25 MG (12.5 MG, 2 IN 1 CYCLICAL), ORAL 50 MG (25 MG, 2 IN 1 D), OR
     Route: 048
     Dates: start: 20100107, end: 20100108
  2. SAVELLA [Suspect]
     Dosage: 12.5 MG (12.5 MG, 1 IN 1 D), ORAL 25 MG (12.5 MG, 2 IN 1 CYCLICAL), ORAL 50 MG (25 MG, 2 IN 1 D), OR
     Route: 048
     Dates: start: 20100109, end: 20100112
  3. SAVELLA [Suspect]
     Dosage: 12.5 MG (12.5 MG, 1 IN 1 D), ORAL 25 MG (12.5 MG, 2 IN 1 CYCLICAL), ORAL 50 MG (25 MG, 2 IN 1 D), OR
     Route: 048
     Dates: start: 20100306, end: 20100306
  4. SAVELLA [Suspect]
     Dosage: 100 MG (50 MG, 2 IN 1 D), ORAL
     Route: 048
     Dates: start: 20100113, end: 20100326
  5. PERCOCET [Concomitant]
  6. ATIVAN [Concomitant]
  7. ROBAXIN [Concomitant]

REACTIONS (1)
  - RASH [None]
